FAERS Safety Report 19777782 (Version 1)
Quarter: 2021Q3

REPORT INFORMATION
  Report Type: Spontaneous
  Country: US (occurrence: US)
  Receive Date: 20210901
  Receipt Date: 20210901
  Transmission Date: 20211014
  Serious: Yes (Hospitalization)
  Sender: FDA-Public Use
  Company Number: None

PATIENT
  Age: 75 Year
  Sex: Female
  Weight: 74.25 kg

DRUGS (1)
  1. REGEN?COV [Suspect]
     Active Substance: CASIRIVIMAB\IMDEVIMAB
     Indication: COVID-19
     Dosage: ?          OTHER FREQUENCY:ONCE;?
     Route: 041
     Dates: start: 20210729, end: 20210829

REACTIONS (6)
  - SARS-CoV-2 test negative [None]
  - Decreased appetite [None]
  - Vomiting [None]
  - Diarrhoea [None]
  - Pulmonary embolism [None]
  - Hypokalaemia [None]

NARRATIVE: CASE EVENT DATE: 20210808
